FAERS Safety Report 11564575 (Version 1)
Quarter: 2015Q3

REPORT INFORMATION
  Report Type: Spontaneous
  Country: US (occurrence: US)
  Receive Date: 20150916
  Receipt Date: 20150916
  Transmission Date: 20151125
  Serious: No
  Sender: FDA-Public Use
  Company Number: US-ELI_LILLY_AND_COMPANY-US200903005738

PATIENT
  Age: 76 Year
  Sex: Female

DRUGS (6)
  1. CALCIUM CARBONATE. [Concomitant]
     Active Substance: CALCIUM CARBONATE
  2. ATENOLOL. [Concomitant]
     Active Substance: ATENOLOL
  3. FORTEO [Suspect]
     Active Substance: TERIPARATIDE
     Indication: FRACTURE
     Dosage: 20 UG, DAILY (1/D)
     Dates: start: 200902
  4. FORTEO [Suspect]
     Active Substance: TERIPARATIDE
     Dosage: 20 UG, DAILY (1/D)
     Dates: start: 2009
  5. K-DUR [Concomitant]
     Active Substance: POTASSIUM CHLORIDE
  6. ERGOCALCIFEROL. [Concomitant]
     Active Substance: ERGOCALCIFEROL

REACTIONS (2)
  - Arthralgia [Recovering/Resolving]
  - Rash pruritic [Recovering/Resolving]

NARRATIVE: CASE EVENT DATE: 200903
